FAERS Safety Report 8579645-3 (Version None)
Quarter: 2012Q3

REPORT INFORMATION
  Report Type: 
  Country: None (occurrence: None)
  Receive Date: 20120808
  Receipt Date: 20120803
  Transmission Date: 20120928
  Serious: Yes (Other)
  Sender: FDA-Public Use
  Company Number: PHHY2012IT067498

PATIENT
  Sex: Female

DRUGS (8)
  1. BISOPROLOL FUMARATE [Suspect]
     Dosage: 1 DF
     Route: 048
     Dates: start: 20110516, end: 20120515
  2. MAGNESIUM HYDROXIDE TAB [Concomitant]
     Route: 048
  3. ASPIRIN [Concomitant]
  4. LANSOPRAZOLE [Concomitant]
  5. RAMIPRIL [Suspect]
     Indication: HYPERTENSION
     Dosage: 10 MG
     Route: 048
     Dates: start: 20110516, end: 20120515
  6. DIAMICRON [Concomitant]
     Indication: DIABETES MELLITUS
     Dosage: 30 MG
     Route: 048
     Dates: start: 20110516, end: 20120515
  7. NORVASC [Suspect]
     Indication: HYPERTENSION
     Dosage: 10 MG
     Route: 048
     Dates: start: 20110516, end: 20120515
  8. ATORVASTATIN CALCIUM [Concomitant]
     Dosage: 10 MG
     Route: 048

REACTIONS (2)
  - ATRIOVENTRICULAR BLOCK [None]
  - SYNCOPE [None]
